FAERS Safety Report 9549472 (Version 1)
Quarter: 2013Q3

REPORT INFORMATION
  Report Type: Spontaneous
  Country: US (occurrence: US)
  Receive Date: 20130924
  Receipt Date: 20130924
  Transmission Date: 20140515
  Serious: Yes (Other)
  Sender: FDA-Public Use
  Company Number: US-TEVA-433776USA

PATIENT
  Sex: Female
  Weight: 73.55 kg

DRUGS (14)
  1. BACLOFEN [Suspect]
     Indication: PRODUCT USED FOR UNKNOWN INDICATION
     Dates: end: 201303
  2. BACLOFEN [Suspect]
     Dates: start: 201303
  3. AMPYRA (DALFAMPRIDINE) [Suspect]
     Indication: GAIT DISTURBANCE
     Dosage: 20 MILLIGRAM DAILY;
     Route: 048
     Dates: start: 2011, end: 2013
  4. AMPYRA (DALFAMPRIDINE) [Suspect]
     Dosage: 20 MILLIGRAM DAILY;
     Route: 048
     Dates: start: 2013, end: 2013
  5. AMPYRA (DALFAMPRIDINE) [Suspect]
     Dosage: 20 MILLIGRAM DAILY;
     Dates: start: 2013
  6. AMPYRA (DALFAMPRIDINE) [Suspect]
     Dates: start: 20130510
  7. TYSABRI [Concomitant]
  8. METOPROLOL [Concomitant]
  9. GABAPENTIN [Concomitant]
  10. VITAMIN B12 [Concomitant]
  11. SERTRALINE HYDROCHLORIDE [Concomitant]
  12. PLAQUENIL [Concomitant]
  13. ALL OTHER THERAPEUTIC PRODUCTS [Concomitant]
     Dates: start: 201303, end: 201303
  14. ANTIHYPERTENSIVES [Concomitant]

REACTIONS (9)
  - Toxicity to various agents [Recovered/Resolved]
  - Muscular weakness [Recovered/Resolved]
  - Asthenia [Recovered/Resolved]
  - Diarrhoea [Not Recovered/Not Resolved]
  - Fatigue [Recovered/Resolved]
  - Mucous stools [Not Recovered/Not Resolved]
  - Constipation [Recovered/Resolved]
  - Product quality issue [Unknown]
  - Drug effect decreased [Unknown]
